FAERS Safety Report 18740549 (Version 1)
Quarter: 2021Q1

REPORT INFORMATION
  Report Type: Spontaneous
  Country: AT (occurrence: AT)
  Receive Date: 20210114
  Receipt Date: 20210114
  Transmission Date: 20210419
  Serious: Yes (Other)
  Sender: FDA-Public Use
  Company Number: AT-BEH-2020112469

PATIENT
  Age: 20 Year
  Sex: Female

DRUGS (19)
  1. HIZENTRA [Suspect]
     Active Substance: HUMAN IMMUNOGLOBULIN G
     Indication: SELECTIVE POLYSACCHARIDE ANTIBODY DEFICIENCY
     Dosage: 3 MILLILITER, TOT
     Route: 058
     Dates: start: 20191209, end: 20191209
  2. HIZENTRA [Suspect]
     Active Substance: HUMAN IMMUNOGLOBULIN G
     Dosage: 3 MILLILITER, TOT
     Route: 058
     Dates: start: 20191212, end: 20191212
  3. HIZENTRA [Suspect]
     Active Substance: HUMAN IMMUNOGLOBULIN G
     Dosage: 10 MILLILITER, BIW (EVERY 3 DAYS)
     Route: 058
     Dates: start: 20191128
  4. PREDNISON [Concomitant]
     Active Substance: PREDNISONE
     Dosage: 12.5 MILLIGRAM, TOT
     Route: 065
     Dates: start: 20191218, end: 20191218
  5. ZYRTEC [LEVOCABASTINE HYDROCHLORIDE] [Concomitant]
     Active Substance: LEVOCABASTINE HYDROCHLORIDE
     Dosage: 2 DOSAGE FORM, TOT
     Route: 065
     Dates: start: 20191212, end: 20191212
  6. PREDNISON [Concomitant]
     Active Substance: PREDNISONE
     Indication: PREMEDICATION
     Dosage: 25 MILLIGRAM, TOT
     Route: 065
     Dates: start: 20191209, end: 20191218
  7. PREDNISON [Concomitant]
     Active Substance: PREDNISONE
     Dosage: 12.5 MILLIGRAM, TOT
     Route: 065
     Dates: start: 20191212, end: 20191212
  8. ZYRTEC [LEVOCABASTINE HYDROCHLORIDE] [Concomitant]
     Active Substance: LEVOCABASTINE HYDROCHLORIDE
     Dosage: 2 DOSAGE FORM, TOT
     Route: 065
     Dates: start: 20191215, end: 20191215
  9. PREDNISON [Concomitant]
     Active Substance: PREDNISONE
     Indication: PROPHYLAXIS
     Dosage: 12.5 MILLIGRAM, TOT
     Route: 065
     Dates: start: 20191209, end: 20191209
  10. PRIVIGEN [Suspect]
     Active Substance: HUMAN IMMUNOGLOBULIN G
     Indication: PRODUCT USED FOR UNKNOWN INDICATION
     Dosage: 10 GRAM, QOW
     Route: 042
     Dates: start: 2018, end: 201812
  11. HIZENTRA [Suspect]
     Active Substance: HUMAN IMMUNOGLOBULIN G
     Indication: BRONCHITIS
     Dosage: 10 MILLILITER, TOT
     Route: 058
     Dates: start: 20191205, end: 20191205
  12. HIZENTRA [Suspect]
     Active Substance: HUMAN IMMUNOGLOBULIN G
     Dosage: 3 MILLILITER, TOT
     Route: 058
     Dates: start: 20191218, end: 20191218
  13. ZYRTEC [LEVOCABASTINE HYDROCHLORIDE] [Concomitant]
     Active Substance: LEVOCABASTINE HYDROCHLORIDE
     Indication: PROPHYLAXIS
     Dosage: 2 DOSAGE FORM, TOT
     Route: 065
     Dates: start: 20191209, end: 20191209
  14. HIZENTRA [Suspect]
     Active Substance: HUMAN IMMUNOGLOBULIN G
     Indication: HYPOGAMMAGLOBULINAEMIA
     Dosage: 10 MILLILITER, QOD
     Route: 058
     Dates: start: 20191128, end: 20191218
  15. HIZENTRA [Suspect]
     Active Substance: HUMAN IMMUNOGLOBULIN G
     Indication: INFECTION
     Dosage: 10 MILLILITER, TOT
     Route: 058
     Dates: start: 201912, end: 201912
  16. ZYRTEC [LEVOCABASTINE HYDROCHLORIDE] [Concomitant]
     Active Substance: LEVOCABASTINE HYDROCHLORIDE
     Dosage: 2 DOSAGE FORM, TOT
     Route: 065
     Dates: start: 20191218, end: 20191218
  17. HIZENTRA [Suspect]
     Active Substance: HUMAN IMMUNOGLOBULIN G
     Dosage: 3 MILLILITER, TOT
     Route: 058
     Dates: start: 20191215, end: 20191215
  18. PREDNISON [Concomitant]
     Active Substance: PREDNISONE
     Dosage: 12.5 MILLIGRAM, TOT
     Route: 065
     Dates: start: 20191215, end: 20191215
  19. ZYRTEC [LEVOCABASTINE HYDROCHLORIDE] [Concomitant]
     Active Substance: LEVOCABASTINE HYDROCHLORIDE
     Indication: PREMEDICATION
     Dosage: 2 DOSAGE FORM, TOT
     Route: 065
     Dates: start: 20191209, end: 20191218

REACTIONS (13)
  - Rash macular [Recovered/Resolved]
  - Erythema [Recovered/Resolved]
  - Dyspnoea [Recovered/Resolved]
  - Local reaction [Recovered/Resolved]
  - Hypersensitivity [Unknown]
  - Infusion site erythema [Recovered/Resolved]
  - Injection site erythema [Recovered/Resolved]
  - Injection site pruritus [Recovered/Resolved]
  - Rash [Recovered/Resolved]
  - Sneezing [Recovered/Resolved]
  - Anaphylactic reaction [Recovered/Resolved]
  - Rash pruritic [Recovered/Resolved]
  - Drug ineffective [Unknown]

NARRATIVE: CASE EVENT DATE: 20191205
